FAERS Safety Report 19235519 (Version 2)
Quarter: 2021Q2

REPORT INFORMATION
  Report Type: Spontaneous
  Country: US (occurrence: US)
  Receive Date: 20210510
  Receipt Date: 20210624
  Transmission Date: 20210717
  Serious: Yes (Life-Threatening, Hospitalization, Other)
  Sender: FDA-Public Use
  Company Number: US-AUROBINDO-AUR-APL-2021-018426

PATIENT
  Age: 4 Year
  Sex: Male

DRUGS (3)
  1. FLECAINIDE [Suspect]
     Active Substance: FLECAINIDE
     Dosage: 2 GRAM
     Route: 065
  2. FLECAINIDE [Suspect]
     Active Substance: FLECAINIDE
     Dosage: 30 MILLIGRAM, 3 TIMES A DAY
     Route: 065
  3. FLECAINIDE [Suspect]
     Active Substance: FLECAINIDE
     Indication: SUPRAVENTRICULAR TACHYCARDIA
     Dosage: 600 MILLIGRAM IN TOTAL (INGESTION)
     Route: 048

REACTIONS (10)
  - Bradycardia [Recovered/Resolved]
  - Hypotension [Unknown]
  - Electrocardiogram QRS complex abnormal [Recovered/Resolved]
  - Agitation [Recovered/Resolved]
  - Accidental exposure to product by child [Unknown]
  - Ventricular tachycardia [Recovered/Resolved]
  - Toxicity to various agents [Unknown]
  - Accidental overdose [Recovered/Resolved]
  - Haemodynamic instability [Unknown]
  - Mental status changes [Unknown]
